FAERS Safety Report 15048900 (Version 2)
Quarter: 2018Q3

REPORT INFORMATION
  Report Type: Spontaneous
  Country: US (occurrence: US)
  Receive Date: 20180622
  Receipt Date: 20180705
  Transmission Date: 20181010
  Serious: No
  Sender: FDA-Public Use
  Company Number: US-ASTRAZENECA-2018SE70455

PATIENT
  Age: 29447 Day
  Sex: Male
  Weight: 104.3 kg

DRUGS (2)
  1. PLAVIX [Concomitant]
     Active Substance: CLOPIDOGREL BISULFATE
     Indication: CORONARY ARTERY DISEASE
     Route: 048
     Dates: start: 2013
  2. SYMBICORT [Suspect]
     Active Substance: BUDESONIDE\FORMOTEROL FUMARATE DIHYDRATE
     Indication: ASTHMA
     Dosage: 160/4.5 MCG, 2 PUFFS TWO TIMES A DAY
     Route: 055
     Dates: start: 20180228

REACTIONS (4)
  - Asthma [Unknown]
  - Circumstance or information capable of leading to device use error [Unknown]
  - Prostatic specific antigen increased [Unknown]
  - Device failure [Unknown]

NARRATIVE: CASE EVENT DATE: 20180517
